FAERS Safety Report 8180274-4 (Version None)
Quarter: 2012Q1

REPORT INFORMATION
  Report Type: 
  Country: None (occurrence: None)
  Receive Date: 20120302
  Receipt Date: 20120103
  Transmission Date: 20120608
  Serious: No
  Sender: FDA-Public Use
  Company Number: US-GLAXOSMITHKLINE-A0959809A

PATIENT
  Age: 68 Year
  Sex: Female

DRUGS (1)
  1. CLOBETASOL PROPIONATE [Suspect]
     Indication: PRURITUS
     Dosage: 1APP TWICE PER DAY
     Route: 061
     Dates: start: 20111231, end: 20120102

REACTIONS (1)
  - PRURITUS [None]
